FAERS Safety Report 24120318 (Version 1)
Quarter: 2024Q3

REPORT INFORMATION
  Report Type: Spontaneous
  Country: FR (occurrence: FR)
  Receive Date: 20240722
  Receipt Date: 20240722
  Transmission Date: 20241017
  Serious: Yes (Other)
  Sender: JOHNSON AND JOHNSON
  Company Number: FR-BAYER-2024A105075

PATIENT
  Age: 68 Year
  Sex: Male

DRUGS (3)
  1. XARELTO [Suspect]
     Active Substance: RIVAROXABAN
     Indication: Angiopathy
     Dosage: 20 MG, QD
     Route: 048
     Dates: start: 202303
  2. XARELTO [Suspect]
     Active Substance: RIVAROXABAN
     Indication: Carotid artery occlusion
     Route: 048
  3. RIFAMPIN [Concomitant]
     Active Substance: RIFAMPIN
     Dosage: 300 MG, BID

REACTIONS (2)
  - Osteomyelitis [Unknown]
  - Contraindicated product prescribed [Unknown]
